FAERS Safety Report 4656779-7 (Version None)
Quarter: 2005Q2

REPORT INFORMATION
  Report Type: 
  Country: None (occurrence: None)
  Receive Date: 20050506
  Receipt Date: 20050428
  Transmission Date: 20051028
  Serious: Yes (Hospitalization, Disabling)
  Sender: FDA-Public Use
  Company Number: 2005SE01379

PATIENT
  Age: 62 Year
  Sex: Male
  Weight: 70 kg

DRUGS (3)
  1. BLOPRESS [Suspect]
     Indication: HYPERTENSION
     Dosage: 4 MG QD PO
     Route: 048
     Dates: end: 20050221
  2. ALLEGRA [Suspect]
     Indication: SEASONAL ALLERGY
     Dates: end: 20050221
  3. CHINESE HERBAL MEDICINE [Concomitant]

REACTIONS (12)
  - AORTIC DISSECTION [None]
  - DEPRESSED LEVEL OF CONSCIOUSNESS [None]
  - FALL [None]
  - GLASGOW COMA SCALE ABNORMAL [None]
  - HEMIPLEGIA [None]
  - HYPOTENSION [None]
  - PARALYSIS [None]
  - PARTIAL SEIZURES [None]
  - PHOTOPSIA [None]
  - POSTURE ABNORMAL [None]
  - UNRESPONSIVE TO PAIN STIMULI [None]
  - VASCULAR STENOSIS [None]
